FAERS Safety Report 6432840-1 (Version None)
Quarter: 2009Q4

REPORT INFORMATION
  Report Type: 
  Country: None (occurrence: None)
  Receive Date: 20091109
  Receipt Date: 20091028
  Transmission Date: 20100525
  Serious: Yes (Other)
  Sender: FDA-Public Use
  Company Number: B0600554A

PATIENT
  Sex: Female

DRUGS (1)
  1. BACTROBAN [Suspect]
     Indication: DRUG USE FOR UNKNOWN INDICATION
     Route: 045

REACTIONS (4)
  - HEADACHE [None]
  - INFECTION [None]
  - NASAL SEPTUM PERFORATION [None]
  - PAIN [None]
